FAERS Safety Report 8145021-0 (Version None)
Quarter: 2012Q1

REPORT INFORMATION
  Report Type: 
  Country: None (occurrence: None)
  Receive Date: 20120217
  Receipt Date: 20120203
  Transmission Date: 20120608
  Serious: Yes (Other)
  Sender: FDA-Public Use
  Company Number: PHEH2011US011609

PATIENT
  Sex: Female

DRUGS (4)
  1. GLEEVEC [Suspect]
     Dosage: 600 MG, DAILY
     Route: 048
     Dates: start: 20111025
  2. GLEEVEC [Suspect]
     Dosage: 600 MG, DAILY
     Route: 048
     Dates: start: 20111026
  3. DIURETICS [Concomitant]
     Dosage: UNK UKN, UNK
  4. GLEEVEC [Suspect]
     Indication: CHRONIC MYELOID LEUKAEMIA
     Dosage: 600 MG, DAILY
     Route: 048
     Dates: start: 20111017

REACTIONS (5)
  - URINARY TRACT INFECTION [None]
  - CYSTITIS [None]
  - OEDEMA PERIPHERAL [None]
  - MUSCLE SPASMS [None]
  - PERIORBITAL OEDEMA [None]
